FAERS Safety Report 7248732-4 (Version None)
Quarter: 2011Q1

REPORT INFORMATION
  Report Type: 
  Country: None (occurrence: None)
  Receive Date: 20110128
  Receipt Date: 20110120
  Transmission Date: 20110831
  Serious: Yes (Death, Other)
  Sender: FDA-Public Use
  Company Number: US-TEVA-261437USA

PATIENT
  Sex: Female

DRUGS (4)
  1. COPAXONE [Suspect]
     Indication: MULTIPLE SCLEROSIS
     Route: 058
     Dates: start: 20100107, end: 20110103
  2. DYAZIDE [Concomitant]
     Dosage: 3.5/25MG
     Route: 048
  3. BACLOFEN [Concomitant]
     Indication: MUSCLE SPASTICITY
     Dosage: UP TO 4X DAILY
     Route: 048
  4. ETONOGESTREL [Concomitant]
     Indication: CONTRACEPTION

REACTIONS (1)
  - COLON CANCER STAGE IV [None]
